FAERS Safety Report 4787396-6 (Version None)
Quarter: 2005Q4

REPORT INFORMATION
  Report Type: 
  Country: None (occurrence: None)
  Receive Date: 20051003
  Receipt Date: 20050926
  Transmission Date: 20060501
  Serious: Yes (Life-Threatening)
  Sender: FDA-Public Use
  Company Number: 2005-BP-16424RO

PATIENT
  Age: 89 Year
  Sex: Male

DRUGS (4)
  1. LEUCOVORIN CALCIUM [Suspect]
     Indication: RECTAL CANCER
     Dosage: 75 MG DAILY (28D ON, 7D OFF) (25 MG, 3 IN 1 D), PO
     Route: 048
     Dates: start: 20050426, end: 20050627
  2. TEGAFUR-URACIL (TEGAFIR URACIL) [Suspect]
     Indication: RECTAL CANCER
     Dosage: 4 CAPS DAILY (28D ON, 7D OFF), PO
     Route: 048
     Dates: start: 20050426, end: 20050627
  3. POLLAKISU (OXYBUTYNIN HYDROCHLORIDE) [Concomitant]
  4. HARNAL (TAMSULOSIN HYDROCHLORIDE) [Concomitant]

REACTIONS (1)
  - DIARRHOEA [None]
